FAERS Safety Report 4516721-6 (Version None)
Quarter: 2004Q4

REPORT INFORMATION
  Report Type: 
  Country: None (occurrence: None)
  Receive Date: 20041029
  Receipt Date: 20040903
  Transmission Date: 20050328
  Serious: No
  Sender: FDA-Public Use
  Company Number: 2004-119978-NL

PATIENT
  Age: 38 Year
  Sex: Female
  Weight: 81.6 kg

DRUGS (6)
  1. NUVARING [Suspect]
     Indication: CONTRACEPTION
     Dosage: DF DAILY VAGINAL
     Route: 067
     Dates: start: 20030901
  2. K-Y JELLY [Concomitant]
  3. VITAMIN C [Concomitant]
  4. MULTI-VITAMINS [Concomitant]
  5. MONISTAT 7 [Concomitant]
  6. TERAZOL 3 [Concomitant]

REACTIONS (4)
  - DEVICE FAILURE [None]
  - MEDICAL DEVICE DISCOMFORT [None]
  - VAGINAL CONTRACEPTIVE DEVICE EXPELLED [None]
  - VAGINAL MYCOSIS [None]
